FAERS Safety Report 6433971-2 (Version None)
Quarter: 2009Q4

REPORT INFORMATION
  Report Type: 
  Country: None (occurrence: None)
  Receive Date: 20091110
  Receipt Date: 20091104
  Transmission Date: 20100525
  Serious: Yes (Other)
  Sender: FDA-Public Use
  Company Number: DE-BRISTOL-MYERS SQUIBB COMPANY-14844054

PATIENT
  Sex: Female

DRUGS (5)
  1. ARIPIPRAZOLE [Suspect]
     Indication: DEPRESSION
     Dates: start: 20090201, end: 20090901
  2. ARIPIPRAZOLE [Suspect]
     Indication: PERSONALITY DISORDER
     Dates: start: 20090201, end: 20090901
  3. BUPRENORPHINE [Concomitant]
     Indication: MENTAL DISORDER
     Route: 060
  4. BUPRENORPHINE [Concomitant]
     Indication: ABNORMAL BEHAVIOUR
     Route: 060
  5. PAROXAT [Concomitant]
     Indication: DEPRESSION
     Dates: start: 20070101, end: 20090201

REACTIONS (1)
  - RAYNAUD'S PHENOMENON [None]
